FAERS Safety Report 20160351 (Version 1)
Quarter: 2021Q4

REPORT INFORMATION
  Report Type: Spontaneous
  Country: US (occurrence: None)
  Receive Date: 20211208
  Receipt Date: 20211208
  Transmission Date: 20220303
  Serious: No
  Sender: FDA-Public Use
  Company Number: 2021A824559

PATIENT
  Age: 882 Month
  Sex: Female
  Weight: 60.8 kg

DRUGS (1)
  1. PULMICORT FLEXHALER [Suspect]
     Active Substance: BUDESONIDE
     Indication: Chronic obstructive pulmonary disease
     Dosage: 180 UG, 2 INHALATIONS ONCE DAILY IN THE MORNING ONLY
     Route: 055
     Dates: start: 20210913

REACTIONS (6)
  - Pulmonary congestion [Unknown]
  - Lung disorder [Unknown]
  - Cough [Unknown]
  - Intentional product misuse [Unknown]
  - Intentional device misuse [Unknown]
  - Device delivery system issue [Unknown]

NARRATIVE: CASE EVENT DATE: 20210901
